FAERS Safety Report 5821238-2 (Version None)
Quarter: 2008Q3

REPORT INFORMATION
  Report Type: 
  Country: None (occurrence: None)
  Receive Date: 20080724
  Receipt Date: 20080711
  Transmission Date: 20090109
  Serious: Yes (Other)
  Sender: FDA-Public Use
  Company Number: BE-ASTRAZENECA-2008AC01484

PATIENT
  Age: 204 Month
  Sex: Female
  Weight: 63.5 kg

DRUGS (4)
  1. SEROQUEL [Suspect]
     Indication: HALLUCINATION
     Route: 048
     Dates: start: 20070910
  2. SOLIAN [Concomitant]
     Indication: HALLUCINATION
     Route: 048
     Dates: start: 20070131
  3. SOLIAN [Concomitant]
     Route: 048
     Dates: start: 20070910
  4. PROVIGIL [Concomitant]
     Indication: SLEEP DISORDER
     Dates: start: 20070702

REACTIONS (2)
  - LEUKOPENIA [None]
  - NEUTROPENIA [None]
